FAERS Safety Report 9518831 (Version 1)
Quarter: 2013Q1

REPORT INFORMATION
  Report Type: Spontaneous
  Country: US (occurrence: None)
  Receive Date: 20130305
  Receipt Date: 20130305
  Transmission Date: 20140127
  Serious: Yes (Other)
  Sender: FDA-Public Use
  Company Number: 163-21880-12060287

PATIENT
  Age: 80 Year
  Sex: Male
  Weight: 58.97 kg

DRUGS (15)
  1. REVLIMID (LENALIDOMIDE) (CAPSULES) [Suspect]
     Indication: PLASMA CELL MYELOMA
     Dosage: 1 IN 1 D
     Route: 048
     Dates: start: 20110811
  2. ACIDOLPHILUS (LACTOBACILLUS ACIDOLPHILLUS) (UNKNOWN) [Concomitant]
  3. ASPIRIN (ACETYLSALICYLIC ACID) (UNNOWN) [Concomitant]
  4. BUPROPION (BUPROPION) (UNKNOWN) (BUPROPION) [Concomitant]
  5. COREG (CARVEDILOL) (UNKNOWN) [Concomitant]
  6. DECADRON [Concomitant]
  7. EFFEXOR (VENLAFAXINE HYDROCHLORIDE) (UNKNOWN) [Concomitant]
  8. FISH OIL (FISH OIL) (UNKNOWN) [Concomitant]
  9. FOLIC ACID (FOLIC ACID (UNKNOWN) [Concomitant]
  10. KLONOPIN (CLONAZEPAM) (UNKNOWN) [Concomitant]
  11. MACUVITE (VITAMINS WITH MINERALS) (UNKNOWN) [Concomitant]
  12. MULTIVITAMINS (MULTIVITAMINS) (UNKNOWN) [Concomitant]
  13. OMEPRAZOLE (OMEPRAZOLE) (UNKNOWN) [Concomitant]
  14. PACERONE (AMIODARONE HYDROCHLORIDE) (UNKNOWN) [Concomitant]
  15. SYNTHROID (LEVOTHYROXINE SODIUM) (UNKNOWN) [Concomitant]

REACTIONS (4)
  - Rectal haemorrhage [None]
  - Excoriation [None]
  - Wound haemorrhage [None]
  - Fall [None]
